FAERS Safety Report 5782104-4 (Version None)
Quarter: 2008Q2

REPORT INFORMATION
  Report Type: 
  Country: None (occurrence: None)
  Receive Date: 20080623
  Receipt Date: 20080617
  Transmission Date: 20081010
  Serious: Yes (Hospitalization)
  Sender: FDA-Public Use
  Company Number: JP-ALLERGAN-0800614US

PATIENT
  Sex: Male

DRUGS (2)
  1. BOTULINUM TOXIN TYPE A - GENERAL [Suspect]
     Indication: DRUG USE FOR UNKNOWN INDICATION
     Dosage: 240 UNITS, SINGLE
     Route: 030
     Dates: start: 20071025, end: 20071025
  2. EXCEGRAN [Concomitant]
     Indication: CONVULSION PROPHYLAXIS
     Dosage: 200 MG, UNK
     Route: 048
     Dates: end: 20080111

REACTIONS (2)
  - CONVULSION [None]
  - HEMIPLEGIA [None]
